FAERS Safety Report 5367219-7 (Version None)
Quarter: 2007Q2

REPORT INFORMATION
  Report Type: 
  Country: None (occurrence: None)
  Receive Date: 20070622
  Receipt Date: 20070614
  Transmission Date: 20071010
  Serious: Yes (Disabling)
  Sender: FDA-Public Use
  Company Number: PHRM2007FR01593

PATIENT
  Sex: Female
  Weight: 68 kg

DRUGS (3)
  1. ZOMETA [Suspect]
     Indication: METASTASES TO BONE
     Dosage: 4 MG, QMO
     Route: 042
     Dates: start: 20060403, end: 20070101
  2. NAVELBINE [Concomitant]
  3. 5-FU + EPIRUBICIN + CYCLOPHOSPHAMIDE [Concomitant]

REACTIONS (6)
  - FEEDING DISORDER [None]
  - GINGIVAL PAIN [None]
  - PERIODONTAL DISEASE [None]
  - TOOTH LOSS [None]
  - TOOTHACHE [None]
  - WEIGHT DECREASED [None]
